FAERS Safety Report 10642935 (Version 2)
Quarter: 2014Q4

REPORT INFORMATION
  Report Type: Spontaneous
  Country: US (occurrence: US)
  Receive Date: 20141210
  Receipt Date: 20141210
  Transmission Date: 20150529
  Serious: Yes (Hospitalization, Other)
  Sender: FDA-Public Use
  Company Number: US-CREALTA PHARMACEUTICALS-2013S1000024

PATIENT
  Age: 38 Year
  Sex: Male

DRUGS (2)
  1. COLCHICINE. [Concomitant]
     Active Substance: COLCHICINE
     Indication: PRODUCT USED FOR UNKNOWN INDICATION
  2. KRYSTEXXA [Suspect]
     Active Substance: PEGLOTICASE
     Indication: GOUTY TOPHUS
     Route: 042
     Dates: start: 201302

REACTIONS (8)
  - Renal failure [Unknown]
  - Haemolytic anaemia [Unknown]
  - Haemolysis [Recovered/Resolved]
  - Contraindication to medical treatment [Unknown]
  - Asthenia [Unknown]
  - Methaemoglobinaemia [Recovered/Resolved]
  - Arthritis bacterial [Unknown]
  - Malaise [Unknown]

NARRATIVE: CASE EVENT DATE: 201302
